FAERS Safety Report 18096267 (Version 2)
Quarter: 2020Q3

REPORT INFORMATION
  Report Type: Spontaneous
  Country: US (occurrence: US)
  Receive Date: 20200730
  Receipt Date: 20200808
  Transmission Date: 20201103
  Serious: Yes (Hospitalization)
  Sender: FDA-Public Use
  Company Number: US-TEVA-2020-US-1806028

PATIENT
  Age: 67 Year
  Sex: Male

DRUGS (4)
  1. PREDNISOLONE ACETATE. [Suspect]
     Active Substance: PREDNISOLONE ACETATE
     Indication: CORNEAL DEGENERATION
     Dosage: ADMINISTERED FOUR TIMES A DAY
     Route: 061
  2. SODIUM CHLORIDE. [Concomitant]
     Active Substance: SODIUM CHLORIDE
     Indication: CORNEAL DEGENERATION
     Dosage: ADMINISTERED SIX TIMES A DAY
     Route: 065
  3. DEXAMETHASONE. [Suspect]
     Active Substance: DEXAMETHASONE
     Indication: INTRAOPERATIVE CARE
     Route: 057
  4. TRIAMCINOLONE [Suspect]
     Active Substance: TRIAMCINOLONE
     Indication: INTRAOPERATIVE CARE
     Route: 050

REACTIONS (2)
  - Cytomegalovirus chorioretinitis [Recovering/Resolving]
  - Rhegmatogenous retinal detachment [Recovering/Resolving]
